FAERS Safety Report 6437304-7 (Version None)
Quarter: 2009Q4

REPORT INFORMATION
  Report Type: 
  Country: None (occurrence: None)
  Receive Date: 20091112
  Receipt Date: 20091105
  Transmission Date: 20100525
  Serious: Yes (Other)
  Sender: FDA-Public Use
  Company Number: FR-ROCHE-667070

PATIENT
  Age: 64 Year
  Sex: Male

DRUGS (1)
  1. XELODA [Suspect]
     Indication: NEOPLASM
     Route: 065
     Dates: end: 20090915

REACTIONS (2)
  - OPTIC NERVE DISORDER [None]
  - VISUAL IMPAIRMENT [None]
